FAERS Safety Report 8120124 (Version 3)
Quarter: 2013Q4

REPORT INFORMATION
  Report Type: Spontaneous
  Country: US (occurrence: US)
  Receive Date: 20110905
  Receipt Date: 20131231
  Transmission Date: 20140711
  Serious: Yes (Other)
  Sender: FDA-Public Use
  Company Number: PHEH2011US02539

PATIENT
  Age: 17 Year
  Sex: Male

DRUGS (1)
  1. GILENYA [Suspect]
     Indication: RELAPSING-REMITTING MULTIPLE SCLEROSIS
     Dosage: 0.5 MG, QD
     Route: 048
     Dates: start: 20110719, end: 20120122

REACTIONS (27)
  - VIIth nerve paralysis [Recovered/Resolved]
  - VIth nerve paralysis [Unknown]
  - Diplopia [Unknown]
  - Facial paresis [Unknown]
  - Multiple sclerosis relapse [Recovered/Resolved with Sequelae]
  - Central nervous system lesion [Unknown]
  - Coordination abnormal [Unknown]
  - Paraesthesia [Not Recovered/Not Resolved]
  - Pain [Unknown]
  - Stress [Unknown]
  - Paresis [Unknown]
  - Sensation of heaviness [Unknown]
  - Hypoaesthesia [Unknown]
  - Muscular weakness [Unknown]
  - Lymphocyte count decreased [Recovering/Resolving]
  - Paranasal sinus mucosal hypertrophy [Unknown]
  - Haemoglobin increased [Unknown]
  - Mean cell volume increased [Unknown]
  - Blood creatinine increased [Unknown]
  - Haematocrit increased [Unknown]
  - Eosinophil count increased [Unknown]
  - Albumin globulin ratio increased [Unknown]
  - Blood urea increased [Unknown]
  - Haemoglobin distribution width decreased [Unknown]
  - Neutrophil count increased [Unknown]
  - White blood cell count decreased [Unknown]
  - Drug administered to patient of inappropriate age [Unknown]
